FAERS Safety Report 4335028-3 (Version None)
Quarter: 2004Q2

REPORT INFORMATION
  Report Type: 
  Country: None (occurrence: None)
  Receive Date: 20040408
  Receipt Date: 20040322
  Transmission Date: 20050107
  Serious: Yes (Other)
  Sender: FDA-Public Use
  Company Number: US-GLAXOSMITHKLINE-A0504017A

PATIENT
  Age: 54 Year
  Sex: Female

DRUGS (2)
  1. MALARONE [Suspect]
     Indication: MALARIA PROPHYLAXIS
     Dosage: 1TAB PER DAY
     Route: 048
  2. PRAVACHOL [Concomitant]

REACTIONS (9)
  - BACK PAIN [None]
  - CHILLS [None]
  - CHRONIC LYMPHOCYTIC LEUKAEMIA [None]
  - INCREASED TENDENCY TO BRUISE [None]
  - LYMPHOCYTE COUNT INCREASED [None]
  - NECK PAIN [None]
  - PILOERECTION [None]
  - PYREXIA [None]
  - WHITE BLOOD CELL COUNT INCREASED [None]
